FAERS Safety Report 6308502-8 (Version None)
Quarter: 2009Q3

REPORT INFORMATION
  Report Type: 
  Country: None (occurrence: None)
  Receive Date: 20090813
  Receipt Date: 20090807
  Transmission Date: 20100115
  Serious: Yes (Life-Threatening)
  Sender: FDA-Public Use
  Company Number: JP-ASTRAZENECA-2009SE06261

PATIENT
  Age: 72 Year
  Sex: Female
  Weight: 57 kg

DRUGS (9)
  1. BLOPRESS [Suspect]
     Indication: HYPERTENSION
     Route: 048
     Dates: start: 20080210, end: 20080223
  2. GLYCEROL 2.6% [Concomitant]
     Indication: CEREBRAL HAEMORRHAGE
     Route: 042
     Dates: start: 20080208, end: 20080222
  3. CALCIUM CHANNEL BLOCKERS [Concomitant]
     Indication: HYPERTENSION
     Route: 048
     Dates: start: 20080210, end: 20080223
  4. ANTIHYPERTENSIVES [Concomitant]
     Indication: HYPERTENSION
     Route: 048
     Dates: start: 20080211, end: 20080223
  5. GASTER [Concomitant]
     Route: 042
     Dates: start: 20080208, end: 20080210
  6. ALEVIATIN [Concomitant]
     Route: 042
     Dates: start: 20080208, end: 20080210
  7. CEFAMEZIN ALPHA [Concomitant]
     Route: 042
     Dates: start: 20080208, end: 20080210
  8. UNASYN [Concomitant]
     Route: 042
     Dates: start: 20080211, end: 20080216
  9. KEITEN [Concomitant]
     Route: 042
     Dates: start: 20080217, end: 20080225

REACTIONS (1)
  - PNEUMONIA [None]
